FAERS Safety Report 5210710-4 (Version None)
Quarter: 2007Q1

REPORT INFORMATION
  Report Type: 
  Country: None (occurrence: None)
  Receive Date: 20070116
  Receipt Date: 20070116
  Transmission Date: 20070707
  Serious: Yes (Other)
  Sender: FDA-Public Use
  Company Number: None

PATIENT
  Age: 54 Year
  Sex: Female
  Weight: 51.2565 kg

DRUGS (3)
  1. RITUXIMAB [Suspect]
     Indication: EXTRANODAL MARGINAL ZONE B-CELL LYMPHOMA (MALT TYPE)
     Dosage: 550MG  IV
     Route: 042
     Dates: start: 20061122
  2. RITUXIMAB [Suspect]
     Indication: EXTRANODAL MARGINAL ZONE B-CELL LYMPHOMA (MALT TYPE)
     Dosage: 550MG  IV
     Route: 042
     Dates: start: 20061128
  3. RITUXIMAB [Suspect]

REACTIONS (3)
  - ERYTHEMA [None]
  - PRURITUS [None]
  - RASH MORBILLIFORM [None]
